FAERS Safety Report 4444335-5 (Version None)
Quarter: 2004Q3

REPORT INFORMATION
  Report Type: 
  Country: None (occurrence: None)
  Receive Date: 20040729
  Receipt Date: 20040204
  Transmission Date: 20050211
  Serious: Yes (Other)
  Sender: FDA-Public Use
  Company Number: HQWYE820804FEB04

PATIENT
  Age: 24 Year
  Sex: Female
  Weight: 72.64 kg

DRUGS (2)
  1. MINOCIN [Suspect]
     Indication: ACNE
     Dosage: 100 MG 2X PER 1 DAY, ORAL
     Route: 048
     Dates: start: 20031003
  2. RYNTAN (CHLORPHENAMINE TANNATE/MEPYRAMINE TANNATE/PHENYLEPHRINE TANNAT [Concomitant]

REACTIONS (1)
  - BENIGN INTRACRANIAL HYPERTENSION [None]
